FAERS Safety Report 6349781-0 (Version None)
Quarter: 2009Q3

REPORT INFORMATION
  Report Type: 
  Country: None (occurrence: None)
  Receive Date: 20090911
  Receipt Date: 20090831
  Transmission Date: 20100115
  Serious: Yes (Other)
  Sender: FDA-Public Use
  Company Number: FR-WATSON-2009-07203

PATIENT
  Age: 15 Year
  Sex: Female

DRUGS (1)
  1. METHYLPREDNISOLONE [Suspect]
     Indication: ORAL SURGERY
     Dosage: 16 MG, SINGLE
     Route: 048

REACTIONS (2)
  - HYPOKALAEMIA [None]
  - PARALYSIS [None]
